FAERS Safety Report 8478639-6 (Version None)
Quarter: 2012Q2

REPORT INFORMATION
  Report Type: 
  Country: None (occurrence: None)
  Receive Date: 20120629
  Receipt Date: 20120620
  Transmission Date: 20120825
  Serious: Yes (Other)
  Sender: FDA-Public Use
  Company Number: FR-PFIZER INC-2012154782

PATIENT
  Age: 60 Year
  Sex: Female

DRUGS (5)
  1. ARGATROBAN [Suspect]
     Indication: HEPARIN-INDUCED THROMBOCYTOPENIA
     Dosage: 50 MG, DAILY
     Route: 042
     Dates: start: 20120601, end: 20120603
  2. SANDIMMUNE [Suspect]
     Dosage: 100 MG, 1X/DAY
     Route: 048
     Dates: start: 20120603, end: 20120603
  3. SANDIMMUNE [Suspect]
     Dosage: 200 MG, 1X/DAY
     Route: 048
     Dates: start: 20120605, end: 20120605
  4. SANDIMMUNE [Suspect]
     Indication: HEART TRANSPLANT
     Dosage: 75 MG, 1X/DAY
     Route: 048
     Dates: start: 20120512, end: 20120602
  5. SANDIMMUNE [Suspect]
     Dosage: 150 MG, 1X/DAY
     Route: 048
     Dates: start: 20120604, end: 20120604

REACTIONS (1)
  - DRUG LEVEL DECREASED [None]
